FAERS Safety Report 4527337-X (Version None)
Quarter: 2004Q4

REPORT INFORMATION
  Report Type: 
  Country: None (occurrence: None)
  Receive Date: 20041214
  Receipt Date: 20041214
  Transmission Date: 20050328
  Serious: Yes (Hospitalization)
  Sender: FDA-Public Use
  Company Number: None

PATIENT
  Age: 50 Year
  Sex: Male
  Weight: 66.6788 kg

DRUGS (2)
  1. WARFARIN [Suspect]
     Indication: CEREBROVASCULAR ACCIDENT
     Dosage: 3MG  DAILY ORAL
     Route: 048
     Dates: start: 20040910, end: 20041020
  2. AZITHROMYCIN [Concomitant]

REACTIONS (2)
  - CONTUSION [None]
  - HAEMOPTYSIS [None]
